FAERS Safety Report 14461841 (Version 2)
Quarter: 2019Q1

REPORT INFORMATION
  Report Type: Other
  Country: US (occurrence: US)
  Receive Date: 20180130
  Receipt Date: 20190126
  Transmission Date: 20190417
  Serious: Yes (Other)
  Sender: FDA-Public Use
  Company Number: US-ACORDA-ACO_144065_2017

PATIENT
  Sex: Female

DRUGS (2)
  1. AMPYRA [Suspect]
     Active Substance: DALFAMPRIDINE
     Indication: MULTIPLE SCLEROSIS
     Dosage: 10 MG, BID
     Route: 048
  2. AVONEX [Suspect]
     Active Substance: INTERFERON BETA-1A
     Indication: PRODUCT USED FOR UNKNOWN INDICATION
     Dosage: 30 MCG, WEEKLY
     Route: 030

REACTIONS (10)
  - Cataract [Unknown]
  - Memory impairment [Unknown]
  - Diplopia [Unknown]
  - Eye movement disorder [Unknown]
  - Sleep disorder [Unknown]
  - Aphasia [Unknown]
  - Urge incontinence [Unknown]
  - Pollakiuria [None]
  - Multiple sclerosis relapse [Recovered/Resolved]
  - Asthenia [Unknown]
